FAERS Safety Report 5281267-7 (Version None)
Quarter: 2007Q1

REPORT INFORMATION
  Report Type: 
  Country: None (occurrence: None)
  Receive Date: 20061218
  Receipt Date: 20060302
  Transmission Date: 20070707
  Serious: Yes (Hospitalization)
  Sender: FDA-Public Use
  Company Number: US200603000866

PATIENT
  Age: 60 Year
  Sex: Male

DRUGS (12)
  1. HUMULIN 70/30 [Suspect]
     Dosage: SEE IMAGE
     Dates: start: 20060201
  2. HUMULIN R [Suspect]
     Indication: DIABETES MELLITUS
     Dosage: DAILY (1/D)
  3. VALSARTAN [Concomitant]
  4. AMLODIPINE BESYLATE [Concomitant]
  5. HUMULIN L [Suspect]
     Indication: DIABETES MELLITUS
     Dates: end: 20060101
  6. HUMALOG [Suspect]
     Indication: DIABETES MELLITUS
  7. HUMULIN U [Suspect]
     Indication: DIABETES MELLITUS
  8. INSULIN, ANIMAL (INSULIN, ANIMAL) VIAL [Suspect]
     Indication: DIABETES MELLITUS
  9. INSULIN, ANIMAL (INSULIN, ANIMAL UNKNOWN FORMULATION) UNKNOWN) [Suspect]
     Indication: DIABETES MELLITUS
     Dates: start: 19530101
  10. CRESTOR [Concomitant]
  11. VALSARTAN [Concomitant]
  12. AMLODIPINE [Concomitant]

REACTIONS (6)
  - BLOOD CHOLESTEROL INCREASED [None]
  - BLOOD GLUCOSE DECREASED [None]
  - BLOOD GLUCOSE INCREASED [None]
  - BLOOD PRESSURE INCREASED [None]
  - KETOACIDOSIS [None]
  - VIRAL INFECTION [None]
